FAERS Safety Report 18564208 (Version 1)
Quarter: 2020Q4

REPORT INFORMATION
  Report Type: Spontaneous
  Country: US (occurrence: US)
  Receive Date: 20201130
  Receipt Date: 20201130
  Transmission Date: 20210114
  Serious: No
  Sender: FDA-Public Use
  Company Number: None

PATIENT
  Age: 60 Year
  Sex: Female

DRUGS (1)
  1. QUETIAPINE. [Suspect]
     Active Substance: QUETIAPINE

REACTIONS (3)
  - Product dispensing error [None]
  - Incorrect dose administered [None]
  - Malaise [None]

NARRATIVE: CASE EVENT DATE: 20200912
